FAERS Safety Report 25265729 (Version 4)
Quarter: 2025Q2

REPORT INFORMATION
  Report Type: Spontaneous
  Country: ES (occurrence: ES)
  Receive Date: 20250503
  Receipt Date: 20250620
  Transmission Date: 20250717
  Serious: Yes (Other)
  Sender: AUROBINDO
  Company Number: ES-ELI_LILLY_AND_COMPANY-ES202411011810

PATIENT
  Age: 43 Year
  Sex: Female
  Weight: 58 kg

DRUGS (11)
  1. LETROZOLE [Suspect]
     Active Substance: LETROZOLE
     Indication: Breast cancer metastatic
     Route: 065
  2. ZOMETA [Suspect]
     Active Substance: ZOLEDRONIC ACID
     Indication: Breast cancer metastatic
     Route: 065
  3. LOPERAMIDE HYDROCHLORIDE [Suspect]
     Active Substance: LOPERAMIDE HYDROCHLORIDE
     Indication: Diarrhoea
     Route: 065
  4. ABEMACICLIB [Suspect]
     Active Substance: ABEMACICLIB
     Indication: Breast cancer metastatic
     Dosage: 300 MG, QD (150 MG, BID)
     Route: 048
  5. ABEMACICLIB [Suspect]
     Active Substance: ABEMACICLIB
     Dosage: 300 MG, QD (150 MG, BID)
     Route: 048
  6. ABEMACICLIB [Suspect]
     Active Substance: ABEMACICLIB
     Dosage: 200 MG, QD (100 MG, BID)
     Route: 048
  7. ABEMACICLIB [Suspect]
     Active Substance: ABEMACICLIB
     Dosage: 200 MG, QD (100 MG, BID)
     Route: 048
  8. ABEMACICLIB [Suspect]
     Active Substance: ABEMACICLIB
     Dosage: 200 MG, QD (100 MG, BID)
     Route: 048
  9. ABEMACICLIB [Suspect]
     Active Substance: ABEMACICLIB
     Dosage: 300 MILLIGRAM, ONCE A DAY
     Route: 048
     Dates: start: 20241103
  10. ABEMACICLIB [Suspect]
     Active Substance: ABEMACICLIB
     Route: 048
     Dates: start: 20241204
  11. GOSERELIN [Concomitant]
     Active Substance: GOSERELIN
     Indication: Breast cancer metastatic
     Route: 065

REACTIONS (31)
  - Malignant neoplasm progression [Recovering/Resolving]
  - Feeling hot [Recovering/Resolving]
  - Feeling cold [Recovering/Resolving]
  - Night sweats [Recovering/Resolving]
  - Acne [Recovered/Resolved]
  - Skin discolouration [Recovering/Resolving]
  - Skin exfoliation [Recovering/Resolving]
  - Swelling [Recovering/Resolving]
  - Urine output increased [Recovering/Resolving]
  - Decreased immune responsiveness [Recovering/Resolving]
  - Inflammation [Recovering/Resolving]
  - Weight decreased [Recovering/Resolving]
  - Pleural effusion [Recovered/Resolved]
  - Hiatus hernia [Recovering/Resolving]
  - Flatulence [Recovering/Resolving]
  - Diverticulum intestinal [Recovering/Resolving]
  - Arthropathy [Recovering/Resolving]
  - Appetite disorder [Recovering/Resolving]
  - Dyspepsia [Recovering/Resolving]
  - Asthenia [Recovering/Resolving]
  - Fatigue [Recovering/Resolving]
  - Nausea [Recovering/Resolving]
  - Constipation [Recovering/Resolving]
  - Influenza like illness [Recovering/Resolving]
  - Discomfort [Recovering/Resolving]
  - Hyperhidrosis [Recovering/Resolving]
  - Abdominal pain [Recovering/Resolving]
  - Diarrhoea [Recovering/Resolving]
  - Dizziness [Recovering/Resolving]
  - Pain [Recovered/Resolved]
  - Headache [Recovering/Resolving]

NARRATIVE: CASE EVENT DATE: 20241101
